FAERS Safety Report 7499170-0 (Version None)
Quarter: 2011Q2

REPORT INFORMATION
  Report Type: 
  Country: None (occurrence: None)
  Receive Date: 20110524
  Receipt Date: 20110510
  Transmission Date: 20111010
  Serious: Yes (Hospitalization)
  Sender: FDA-Public Use
  Company Number: US-ELI_LILLY_AND_COMPANY-US201105003886

PATIENT
  Sex: Female

DRUGS (11)
  1. PROTONIX [Concomitant]
  2. XANAX [Concomitant]
  3. PLAVIX [Concomitant]
  4. FORTEO [Suspect]
     Indication: OSTEOPOROSIS
     Dosage: 20 UG, QD
     Route: 065
     Dates: start: 20101001
  5. FORTEO [Suspect]
     Dosage: 20 UG, QD
     Route: 065
  6. MAGNESIUM OXIDE [Concomitant]
  7. METHOTREXATE [Concomitant]
  8. AMBIEN [Concomitant]
  9. VICODIN [Concomitant]
  10. LOPRESSOR [Concomitant]
  11. FOLIC ACID [Concomitant]

REACTIONS (7)
  - MALAISE [None]
  - ARTHRALGIA [None]
  - BONE PAIN [None]
  - MYALGIA [None]
  - PAIN [None]
  - ILEOSTOMY [None]
  - GAIT DISTURBANCE [None]
